FAERS Safety Report 24331362 (Version 2)
Quarter: 2024Q4

REPORT INFORMATION
  Report Type: Spontaneous
  Country: CN (occurrence: CN)
  Receive Date: 20240918
  Receipt Date: 20241006
  Transmission Date: 20250114
  Serious: Yes (Hospitalization)
  Sender: ALEXION PHARMACEUTICALS
  Company Number: 2024A211553

PATIENT
  Age: 68 Year

DRUGS (8)
  1. TICAGRELOR [Suspect]
     Active Substance: TICAGRELOR
  2. TICAGRELOR [Suspect]
     Active Substance: TICAGRELOR
  3. TICAGRELOR [Suspect]
     Active Substance: TICAGRELOR
  4. TICAGRELOR [Suspect]
     Active Substance: TICAGRELOR
  5. ASPIRIN [Suspect]
     Active Substance: ASPIRIN
  6. ASPIRIN [Suspect]
     Active Substance: ASPIRIN
  7. ASPIRIN [Suspect]
     Active Substance: ASPIRIN
  8. ASPIRIN [Suspect]
     Active Substance: ASPIRIN

REACTIONS (2)
  - Gastrointestinal disorder [Recovering/Resolving]
  - Enteritis [Recovering/Resolving]
